FAERS Safety Report 19620908 (Version 1)
Quarter: 2021Q3

REPORT INFORMATION
  Report Type: Spontaneous
  Country: US (occurrence: US)
  Receive Date: 20210728
  Receipt Date: 20210728
  Transmission Date: 20211014
  Serious: No
  Sender: FDA-Public Use
  Company Number: None

PATIENT
  Sex: Male
  Weight: 83.7 kg

DRUGS (9)
  1. GLUCERNA [Concomitant]
     Active Substance: AMINO ACIDS\DEXTROSE\ELECTROLYTES NOS\SOYBEAN OIL\VITAMINS
  2. LANCETS [Concomitant]
     Active Substance: DEVICE
  3. FLUTICASONE. [Concomitant]
     Active Substance: FLUTICASONE
  4. METOCLOPRAMIDE. [Concomitant]
     Active Substance: METOCLOPRAMIDE
  5. JOBST FOR MEN [Concomitant]
  6. CAPECITABINE TAB 500MG [Suspect]
     Active Substance: CAPECITABINE
     Indication: PANCREATIC CARCINOMA
     Route: 048
  7. GLIPIZIDE ER [Concomitant]
     Active Substance: GLIPIZIDE
  8. COMPRESSION AND SUPPORT GLOVES [Concomitant]
  9. BD PEN NEEDLE [Concomitant]

REACTIONS (1)
  - White blood cell disorder [None]
